FAERS Safety Report 4303365-4 (Version None)
Quarter: 2004Q1

REPORT INFORMATION
  Report Type: 
  Country: None (occurrence: None)
  Receive Date: 20040223
  Receipt Date: 20040217
  Transmission Date: 20041129
  Serious: Yes (Hospitalization)
  Sender: FDA-Public Use
  Company Number: NUBN20040002

PATIENT
  Age: 4 Year
  Sex: Female
  Weight: 10 kg

DRUGS (2)
  1. NUBAIN [Suspect]
     Dates: start: 20031104, end: 20031104
  2. ACETAMINOPHEN [Suspect]
     Dosage: 100 MG 6X/DAY IV
     Route: 042
     Dates: start: 20031028, end: 20031030

REACTIONS (4)
  - BONE MARROW DEPRESSION [None]
  - ECCHYMOSIS [None]
  - EPISTAXIS [None]
  - PANCYTOPENIA [None]
